FAERS Safety Report 5265639-2 (Version None)
Quarter: 2007Q1

REPORT INFORMATION
  Report Type: 
  Country: None (occurrence: None)
  Receive Date: 20061213
  Receipt Date: 20030616
  Transmission Date: 20070707
  Serious: Yes (Other)
  Sender: FDA-Public Use
  Company Number: 2003UW07493

PATIENT
  Sex: Female

DRUGS (2)
  1. IRESSA [Suspect]
     Indication: NON-SMALL CELL LUNG CANCER
     Dates: start: 20010101
  2. BRAIN LESION MEDICATION [Concomitant]

REACTIONS (6)
  - CORNEAL DISORDER [None]
  - COUGH [None]
  - DRY SKIN [None]
  - DYSPNOEA [None]
  - NASOPHARYNGITIS [None]
  - PYREXIA [None]
